FAERS Safety Report 4677022-9 (Version None)
Quarter: 2005Q2

REPORT INFORMATION
  Report Type: 
  Country: None (occurrence: None)
  Receive Date: 20050526
  Receipt Date: 20050407
  Transmission Date: 20051028
  Serious: Yes (Hospitalization, Disabling, Other)
  Sender: FDA-Public Use
  Company Number: WAES 0504USA00974

PATIENT
  Age: 82 Year
  Sex: Female

DRUGS (6)
  1. VYTORIN [Suspect]
     Indication: BLOOD CHOLESTEROL INCREASED
     Dosage: 10-40 MG/DAILY/PO
     Route: 048
     Dates: end: 20050312
  2. NORVASC [Concomitant]
  3. PERSANTINE [Concomitant]
  4. TENORMIN [Concomitant]
  5. ASPIRIN [Concomitant]
  6. CALCIUM (UNSPECIFIED) [Concomitant]

REACTIONS (1)
  - RHABDOMYOLYSIS [None]
